FAERS Safety Report 4573044-7 (Version None)
Quarter: 2005Q1

REPORT INFORMATION
  Report Type: 
  Country: None (occurrence: None)
  Receive Date: 20050204
  Receipt Date: 20050120
  Transmission Date: 20050727
  Serious: Yes (Death)
  Sender: FDA-Public Use
  Company Number: A-CH2004-07988

PATIENT
  Age: 78 Year
  Sex: Female

DRUGS (12)
  1. TRACLEER [Suspect]
     Indication: PULMONARY HYPERTENSION
     Dosage: 62.5 MG, BID, ORAL; 125 MG, BID, ORAL
     Route: 048
     Dates: start: 20040712, end: 20040808
  2. TRACLEER [Suspect]
     Indication: PULMONARY HYPERTENSION
     Dosage: 62.5 MG, BID, ORAL; 125 MG, BID, ORAL
     Route: 048
     Dates: start: 20040809, end: 20041007
  3. FUROSEMIDE (FUROSEMIDE) [Concomitant]
  4. PHENPROCOUMON (PHENPROCOUMON) [Concomitant]
  5. SIMVASTATIN [Concomitant]
  6. RAMIPRIL [Concomitant]
  7. TAMOXIFEN (TAMOXIFEN) [Concomitant]
  8. CALCIUM CHANNEL BLOCKERS [Concomitant]
  9. GODAMED (ACETYLSALICYLIC ACID) [Concomitant]
  10. MOLSIHEXAL-SLOW RELEASE (MOLSIDOMINE) [Concomitant]
  11. ROCORNAL (TRAPIDIL) [Concomitant]
  12. REMERON [Concomitant]

REACTIONS (2)
  - CONDITION AGGRAVATED [None]
  - PULMONARY HYPERTENSION [None]
